FAERS Safety Report 4465643-8 (Version None)
Quarter: 2004Q3

REPORT INFORMATION
  Report Type: 
  Country: None (occurrence: None)
  Receive Date: 20040930
  Receipt Date: 20040913
  Transmission Date: 20050211
  Serious: Yes (Hospitalization)
  Sender: FDA-Public Use
  Company Number: DSA_24836_2004

PATIENT
  Age: 89 Year
  Sex: Female

DRUGS (5)
  1. RENIVACE [Suspect]
     Indication: CARDIAC FAILURE
     Dosage: 5 MG Q DAY PO
     Route: 048
     Dates: start: 20040106, end: 20040624
  2. RENIVACE [Suspect]
     Indication: CARDIAC FAILURE
     Dosage: 5 MG Q DAY PO
     Route: 048
     Dates: start: 20040706, end: 20040803
  3. GRANDAXIN [Concomitant]
  4. NORVASC [Concomitant]
  5. DIGOSIN [Concomitant]

REACTIONS (12)
  - BASOPHIL COUNT DECREASED [None]
  - BLOOD POTASSIUM INCREASED [None]
  - BLOOD SODIUM DECREASED [None]
  - BLOOD UREA INCREASED [None]
  - CONDITION AGGRAVATED [None]
  - EOSINOPHIL COUNT DECREASED [None]
  - HAEMATOCRIT DECREASED [None]
  - HAEMOGLOBIN DECREASED [None]
  - LYMPHOCYTE COUNT DECREASED [None]
  - MONOCYTE COUNT DECREASED [None]
  - NEUTROPHIL COUNT DECREASED [None]
  - PLATELET COUNT DECREASED [None]
